FAERS Safety Report 13449383 (Version 3)
Quarter: 2017Q3

REPORT INFORMATION
  Report Type: Spontaneous
  Country: US (occurrence: US)
  Receive Date: 20170417
  Receipt Date: 20170710
  Transmission Date: 20171127
  Serious: Yes (Hospitalization, Disabling, Other)
  Sender: FDA-Public Use
  Company Number: US-BAYER-2017-072153

PATIENT
  Age: 85 Year
  Sex: Female

DRUGS (2)
  1. CIPRO [Suspect]
     Active Substance: CIPROFLOXACIN HYDROCHLORIDE
     Indication: ANTIBIOTIC THERAPY
     Dosage: UNK
     Dates: start: 201607, end: 2017
  2. CIPRO [Suspect]
     Active Substance: CIPROFLOXACIN HYDROCHLORIDE
     Indication: ANTIBIOTIC THERAPY
     Dosage: UNK
     Route: 048

REACTIONS (16)
  - Dysstasia [None]
  - Gait inability [None]
  - Pain [Recovered/Resolved]
  - Muscular weakness [None]
  - Tendon injury [None]
  - Limb discomfort [None]
  - Musculoskeletal disorder [None]
  - Musculoskeletal pain [Not Recovered/Not Resolved]
  - Pain in extremity [None]
  - Fatigue [None]
  - Limb injury [None]
  - Infection [None]
  - Urticaria [None]
  - Wheelchair user [None]
  - Quality of life decreased [Not Recovered/Not Resolved]
  - Adjustment disorder with depressed mood [None]
